FAERS Safety Report 6940719-1 (Version None)
Quarter: 2010Q3

REPORT INFORMATION
  Report Type: 
  Country: None (occurrence: None)
  Receive Date: 20100825
  Receipt Date: 20100819
  Transmission Date: 20110219
  Serious: Yes (Death)
  Sender: FDA-Public Use
  Company Number: CO-ROCHE-719328

PATIENT
  Sex: Male

DRUGS (4)
  1. CELLCEPT [Suspect]
     Indication: HEART TRANSPLANT
     Dosage: FREQUENCY: QD.
     Route: 048
     Dates: start: 20060311, end: 20100420
  2. TACROLIMUS [Concomitant]
     Dosage: FREQUENCY: QD.
     Route: 048
  3. ENALAPRIL [Concomitant]
     Dosage: FREQUENCY: QD.
     Route: 048
  4. FUROSEMIDE [Concomitant]
     Dosage: FREQUENCY: QD.
     Route: 048

REACTIONS (3)
  - CARDIO-RESPIRATORY ARREST [None]
  - CHOLECYSTITIS [None]
  - PNEUMONIA [None]
